FAERS Safety Report 8935443 (Version 1)
Quarter: 2012Q4

REPORT INFORMATION
  Report Type: Spontaneous
  Country: US (occurrence: None)
  Receive Date: 20121119
  Receipt Date: 20121119
  Transmission Date: 20130627
  Serious: No
  Sender: FDA-Public Use
  Company Number: 2012-00182

PATIENT
  Age: 74 Year
  Sex: Male

DRUGS (1)
  1. ZICAM EXTREME CONGESTION RELIEF [Suspect]
     Dosage: 1-2 times daily as needed
     Dates: start: 201011

REACTIONS (2)
  - Prostatomegaly [None]
  - Dysuria [None]
